FAERS Safety Report 18100403 (Version 3)
Quarter: 2020Q3

REPORT INFORMATION
  Report Type: Spontaneous
  Country: US (occurrence: US)
  Receive Date: 20200731
  Receipt Date: 20200821
  Transmission Date: 20201103
  Serious: Yes (Other)
  Sender: FDA-Public Use
  Company Number: US-ALLERGAN-2028333US

PATIENT
  Sex: Female

DRUGS (2)
  1. REFRESH CELLUVISC [Suspect]
     Active Substance: CARBOXYMETHYLCELLULOSE SODIUM
     Indication: PRODUCT USED FOR UNKNOWN INDICATION
     Dosage: UNK
     Route: 065
     Dates: end: 20200811
  2. REFRESH PLUS [Suspect]
     Active Substance: CARBOXYMETHYLCELLULOSE SODIUM
     Indication: DRY EYE
     Dosage: UNK
     Dates: start: 20200810, end: 20200811

REACTIONS (17)
  - Visual brightness [Unknown]
  - Sensory loss [Unknown]
  - Eating disorder [Unknown]
  - Photophobia [Unknown]
  - Ear pain [Unknown]
  - Periorbital swelling [Unknown]
  - Skin tightness [Unknown]
  - Facial pain [Unknown]
  - Insomnia [Unknown]
  - Eye pain [Not Recovered/Not Resolved]
  - Vision blurred [Unknown]
  - Blindness [Unknown]
  - Deafness [Unknown]
  - Dry throat [Unknown]
  - Oropharyngeal pain [Unknown]
  - Ageusia [Unknown]
  - Dry eye [Unknown]

NARRATIVE: CASE EVENT DATE: 20200810
